FAERS Safety Report 4541299-0 (Version None)
Quarter: 2004Q4

REPORT INFORMATION
  Report Type: 
  Country: None (occurrence: None)
  Receive Date: 20041228
  Receipt Date: 20041216
  Transmission Date: 20050328
  Serious: Yes (Hospitalization)
  Sender: FDA-Public Use
  Company Number: B0361960A

PATIENT
  Age: 57 Year
  Sex: Male

DRUGS (7)
  1. WELLBUTRIN [Suspect]
     Indication: DEPRESSION
  2. LINEZOLID (FORMULATION UNKNOWN) (LINEZOLID) [Suspect]
     Indication: GRAFT INFECTION
  3. PROPOFOL [Concomitant]
  4. SUCCINYLCHOLINE CHLORIDE [Concomitant]
  5. ISOFLURANE [Concomitant]
  6. FENTANYL [Concomitant]
  7. ANTIBIOTICS [Concomitant]

REACTIONS (4)
  - DRUG INTERACTION [None]
  - HAEMODYNAMIC INSTABILITY [None]
  - PROCEDURAL COMPLICATION [None]
  - PROCEDURAL HYPERTENSION [None]
